FAERS Safety Report 9708318 (Version 1)
Quarter: 2013Q4

REPORT INFORMATION
  Report Type: Spontaneous
  Country: GB (occurrence: GB)
  Receive Date: 20131125
  Receipt Date: 20131125
  Transmission Date: 20140711
  Serious: Yes (Other)
  Sender: FDA-Public Use
  Company Number: GB-PFIZER INC-2013332695

PATIENT
  Sex: Male

DRUGS (1)
  1. VORICONAZOLE [Suspect]

REACTIONS (1)
  - Pneumonitis [Unknown]
